FAERS Safety Report 22350129 (Version 1)
Quarter: 2023Q2

REPORT INFORMATION
  Report Type: Spontaneous
  Country: US (occurrence: None)
  Receive Date: 20230519
  Receipt Date: 20230519
  Transmission Date: 20230722
  Serious: No
  Sender: FDA-Public Use
  Company Number: None

PATIENT
  Age: 30 Year
  Sex: Male
  Weight: 63 kg

DRUGS (3)
  1. HERBALS\TETRAHYDROCANNABINOL MIXED [Suspect]
     Active Substance: HERBALS\TETRAHYDROCANNABINOL MIXED
     Indication: Anxiety
     Dates: start: 20220209, end: 20230512
  2. HERBALS\TETRAHYDROCANNABINOL MIXED [Suspect]
     Active Substance: HERBALS\TETRAHYDROCANNABINOL MIXED
     Indication: Mood swings
  3. HERBALS\TETRAHYDROCANNABINOL MIXED [Suspect]
     Active Substance: HERBALS\TETRAHYDROCANNABINOL MIXED

REACTIONS (8)
  - Panic attack [None]
  - Insomnia [None]
  - Nausea [None]
  - Diarrhoea [None]
  - Irritability [None]
  - Decreased appetite [None]
  - Depressed mood [None]
  - Withdrawal syndrome [None]

NARRATIVE: CASE EVENT DATE: 20230515
